FAERS Safety Report 23882637 (Version 1)
Quarter: 2024Q2

REPORT INFORMATION
  Report Type: Report from Study
  Country: JP (occurrence: JP)
  Receive Date: 20240522
  Receipt Date: 20240522
  Transmission Date: 20240715
  Serious: Yes (Hospitalization, Other)
  Sender: FDA-Public Use
  Company Number: JP-RECORDATI RARE DISEASE INC.-2024003492

PATIENT

DRUGS (25)
  1. ISTURISA [Suspect]
     Active Substance: OSILODROSTAT PHOSPHATE
     Indication: Cushing^s syndrome
     Dosage: 2 MG DAILY (BID)
     Route: 065
     Dates: start: 20221006, end: 20230216
  2. FUROSEMIDE [Concomitant]
     Active Substance: FUROSEMIDE
     Indication: Disease complication
     Dosage: 20 MG DAILY (BEFORE START OF THE ISTURISA)
     Route: 048
  3. ROSUVASTATIN [Concomitant]
     Active Substance: ROSUVASTATIN
     Indication: Disease complication
     Dosage: 2. 5 MG DAILY (BEFORE START OF THE ISTURISA)
     Route: 048
  4. MIYA-BM [Concomitant]
     Active Substance: CLOSTRIDIUM BUTYRICUM SPORES STRAIN M-55
     Indication: Disease complication
     Dosage: 6 TABLETS DAILY (BEFORE START OF THE ISTURISA)
     Route: 048
  5. BELSOMRA [Concomitant]
     Active Substance: SUVOREXANT
     Indication: Disease complication
     Dosage: 15 MG DAILY (BEFORE START OF THE ISTURISA)
     Route: 048
  6. PANCRELIPASE [Concomitant]
     Active Substance: PANCRELIPASE
     Indication: Disease complication
     Dosage: 450MG DAILY (BEFORE START OF THE ISTURISA)
     Route: 048
  7. BROTIZOLAM [Concomitant]
     Active Substance: BROTIZOLAM
     Indication: Disease complication
     Dosage: 0.5MG DAILY (BEFORE START OF THE ISTURISA)
     Route: 048
  8. ACTONEL [Concomitant]
     Active Substance: RISEDRONATE SODIUM
     Indication: Disease complication
     Dosage: 17.5 MILLIGRAM, QW (BEFORE THE START OF ISTURISA)
     Route: 048
  9. CORTRIL [Concomitant]
     Active Substance: HYDROCORTISONE
     Indication: Disease complication
     Dosage: 15MG DAILY (BEFORE START OF THE ISTURISA)
     Route: 048
  10. HUMALOG [Concomitant]
     Active Substance: INSULIN LISPRO
     Indication: Disease complication
     Dosage: 4UNITS DAILY (INJECTION) (BEFORE START OF THE ISTURISA)
  11. NEXIUM [Concomitant]
     Active Substance: ESOMEPRAZOLE MAGNESIUM
     Indication: Disease complication
     Dosage: 20 MG DAILY (BEFORE START OF THE ISTURISA)
     Route: 048
  12. FEBUXOSTAT [Concomitant]
     Active Substance: FEBUXOSTAT
     Indication: Disease complication
     Dosage: 20 MG DAILY (BEFORE START OF THE ISTURISA) (BEFORE START OF THE ISTURISA)
     Route: 048
  13. HARNAL [Concomitant]
     Active Substance: TAMSULOSIN HYDROCHLORIDE
     Indication: Disease complication
     Dosage: 0.2 MG DAILY (BEFORE START OF THE ISTURISA)
     Route: 048
  14. BICALUTAMIDE [Concomitant]
     Active Substance: BICALUTAMIDE
     Indication: Disease complication
     Dosage: 80 MG DAILY (BEFORE START OF THE ISTURISA)
     Route: 048
  15. SAMSCA [Concomitant]
     Active Substance: TOLVAPTAN
     Indication: Disease complication
     Dosage: 3.75 MG DAILY (BEFORE START OF THE ISTURISA)
     Route: 048
  16. CARVEDILOL [Concomitant]
     Active Substance: CARVEDILOL
     Indication: Disease complication
     Dosage: 15MG DAILY (BEFORE START OF THE ISTURISA)
     Route: 048
  17. AMIODARONE [Concomitant]
     Active Substance: AMIODARONE
     Indication: Disease complication
     Dosage: 200MG DAILY (BEFORE START OF THE ISTURISA)
     Route: 048
  18. ELIQUIS [Concomitant]
     Active Substance: APIXABAN
     Indication: Disease complication
     Dosage: 10MG DAILY (BEFORE START OF THE ISTURISA)
     Route: 048
  19. ENTRESTO [Concomitant]
     Active Substance: SACUBITRIL\VALSARTAN
     Indication: Disease complication
     Dosage: 400MG DAILY (BEFORE START OF THE ISTURISA)
     Route: 048
  20. SPIRONOLACTONE [Concomitant]
     Active Substance: SPIRONOLACTONE
     Indication: Disease complication
     Dosage: 50MG DAILY (BEFORE START OF THE ISTURISA)
     Route: 048
  21. SODIUM FERROUS CITRATE [Concomitant]
     Active Substance: SODIUM FERROUS CITRATE
     Indication: Disease complication
     Dosage: 200 MG DAILY (BEFORE START OF THE ISTURISA)
     Route: 048
  22. REBAMIPIDE [Concomitant]
     Active Substance: REBAMIPIDE
     Indication: Disease complication
     Dosage: 200MG DAILY (BEFORE START OF THE ISTURISA)
     Route: 048
  23. MIROGABALIN BESYLATE [Concomitant]
     Active Substance: MIROGABALIN BESYLATE
     Indication: Disease complication
     Dosage: 20MG DAILY (BEFORE START OF THE ISTURISA)
     Route: 048
  24. POTASSIUM CITRATE\TRISODIUM CITRATE DIHYDRATE [Concomitant]
     Active Substance: POTASSIUM CITRATE\TRISODIUM CITRATE DIHYDRATE
     Indication: Disease complication
     Dosage: 4TABLETS DAILY (BEFORE START OF THE ISTURISA)
     Route: 048
  25. NICERGOLINE [Concomitant]
     Active Substance: NICERGOLINE
     Indication: Disease complication
     Dosage: 15MG DAILY (BEFORE START OF THE ISTURISA)
     Route: 048

REACTIONS (2)
  - Cardiac failure congestive [Recovering/Resolving]
  - Infection [Recovering/Resolving]

NARRATIVE: CASE EVENT DATE: 20220101
